FAERS Safety Report 11213452 (Version 1)
Quarter: 2015Q2

REPORT INFORMATION
  Report Type: Spontaneous
  Country: US (occurrence: None)
  Receive Date: 20150622
  Receipt Date: 20150622
  Transmission Date: 20150821
  Serious: Yes (Disabling)
  Sender: FDA-Public Use
  Company Number: None

PATIENT
  Age: 28 Day
  Sex: Male
  Weight: 63.5 kg

DRUGS (2)
  1. FLUTICASONE NASAL SPRAY [Concomitant]
     Active Substance: FLUTICASONE\FLUTICASONE PROPIONATE
  2. MINOCYCLINE [Suspect]
     Active Substance: MINOCYCLINE\MINOCYCLINE HYDROCHLORIDE
     Indication: ACNE
     Dosage: 1 PILL
     Route: 048
     Dates: start: 20140930, end: 20150613

REACTIONS (5)
  - Pyrexia [None]
  - Night sweats [None]
  - Headache [None]
  - Nausea [None]
  - Weight decreased [None]

NARRATIVE: CASE EVENT DATE: 20150619
